FAERS Safety Report 5526842-7 (Version None)
Quarter: 2007Q4

REPORT INFORMATION
  Report Type: 
  Country: None (occurrence: None)
  Receive Date: 20071120
  Receipt Date: 20070910
  Transmission Date: 20080405
  Serious: Yes (Other)
  Sender: FDA-Public Use
  Company Number: 2007075791

PATIENT
  Age: 77 Year
  Sex: Male
  Weight: 73.63 kg

DRUGS (6)
  1. TIKOSYN [Suspect]
     Indication: ATRIAL FIBRILLATION
     Dosage: 500 MCG (250 MCG),ORAL
     Route: 048
  2. ATENOLOL [Concomitant]
  3. ENALAPRIL MALEATE [Concomitant]
  4. COUMADIN [Concomitant]
  5. POTASSIUM (POTASSIUM) [Concomitant]
  6. MAGNESIUM (MAGNESIUM) [Concomitant]

REACTIONS (2)
  - ATRIAL FIBRILLATION [None]
  - DISEASE RECURRENCE [None]
